FAERS Safety Report 6604331-6 (Version None)
Quarter: 2010Q1

REPORT INFORMATION
  Report Type: 
  Country: None (occurrence: None)
  Receive Date: 20100226
  Receipt Date: 20091006
  Transmission Date: 20100710
  Serious: No
  Sender: FDA-Public Use
  Company Number: A0803791A

PATIENT
  Age: 42 Year
  Sex: Female

DRUGS (3)
  1. LAMICTAL CD [Suspect]
     Indication: BIPOLAR DISORDER
     Dosage: 25MG PER DAY
     Route: 048
     Dates: start: 20090724, end: 20090728
  2. VITAMINS [Concomitant]
  3. MULTI-VITAMIN [Concomitant]

REACTIONS (6)
  - APATHY [None]
  - CONFUSIONAL STATE [None]
  - DIZZINESS [None]
  - DRUG INTOLERANCE [None]
  - LETHARGY [None]
  - VISION BLURRED [None]
